FAERS Safety Report 5486422-9 (Version None)
Quarter: 2007Q4

REPORT INFORMATION
  Report Type: 
  Country: None (occurrence: None)
  Receive Date: 20071012
  Receipt Date: 20070920
  Transmission Date: 20080405
  Serious: No
  Sender: FDA-Public Use
  Company Number: TPA2007A01956

PATIENT
  Sex: Male

DRUGS (1)
  1. ACTOS [Suspect]
     Dosage: 30 MG, 2 IN 1 D, PER ORAL
     Route: 048

REACTIONS (1)
  - NO ADVERSE REACTION [None]
